FAERS Safety Report 18308557 (Version 2)
Quarter: 2020Q4

REPORT INFORMATION
  Report Type: Spontaneous
  Country: US (occurrence: US)
  Receive Date: 20200924
  Receipt Date: 20201119
  Transmission Date: 20210113
  Serious: Yes (Other)
  Sender: FDA-Public Use
  Company Number: US-PFIZER INC-2020367875

PATIENT
  Age: 52 Year
  Sex: Female
  Weight: 103 kg

DRUGS (2)
  1. LYRICA [Suspect]
     Active Substance: PREGABALIN
     Indication: FIBROMYALGIA
     Dosage: 100 MG, 2X/DAY
     Route: 048
  2. LYRICA [Suspect]
     Active Substance: PREGABALIN
     Indication: RESTLESS LEGS SYNDROME

REACTIONS (4)
  - COVID-19 [Recovering/Resolving]
  - Blood cholesterol increased [Unknown]
  - Feeling abnormal [Not Recovered/Not Resolved]
  - Vitamin B12 deficiency [Unknown]
